FAERS Safety Report 11203021 (Version 1)
Quarter: 2015Q2

REPORT INFORMATION
  Report Type: Spontaneous
  Country: US (occurrence: None)
  Receive Date: 20150618
  Receipt Date: 20150618
  Transmission Date: 20150821
  Serious: Yes (Hospitalization)
  Sender: FDA-Public Use
  Company Number: None

PATIENT
  Age: 39 Year
  Sex: Male
  Weight: 112.1 kg

DRUGS (2)
  1. VANCOMYCIN [Suspect]
     Active Substance: VANCOMYCIN
     Indication: CELLULITIS
     Route: 042
     Dates: start: 20120729, end: 20120804
  2. PIPERACILLIN/TAZOBACTAM [Suspect]
     Active Substance: PIPERACILLIN SODIUM\TAZOBACTAM SODIUM
     Indication: CELLULITIS
     Route: 042
     Dates: start: 20120729, end: 20120804

REACTIONS (6)
  - Acute kidney injury [None]
  - Hypotension [None]
  - Drug hypersensitivity [None]
  - Bradycardia [None]
  - Rash generalised [None]
  - Rash erythematous [None]

NARRATIVE: CASE EVENT DATE: 20120805
